FAERS Safety Report 7332449-1 (Version None)
Quarter: 2011Q1

REPORT INFORMATION
  Report Type: 
  Country: None (occurrence: None)
  Receive Date: 20110304
  Receipt Date: 20110222
  Transmission Date: 20110831
  Serious: Yes (Death, Hospitalization)
  Sender: FDA-Public Use
  Company Number: SV-PFIZER INC-2011041481

PATIENT
  Age: 50 Year
  Sex: Male

DRUGS (6)
  1. SUCRALFATE [Suspect]
     Dosage: UNK
  2. VITAMINS NOS [Suspect]
  3. PANTECTA [Suspect]
     Dosage: 40 MG, 1X/DAY
     Route: 048
  4. VITAMIN K TAB [Suspect]
     Dosage: UNK
     Route: 048
  5. PANTECTA [Suspect]
     Dosage: UNK
     Route: 042
     Dates: start: 20100601
  6. VITAMIN K TAB [Suspect]
     Dosage: UNK
     Route: 030

REACTIONS (2)
  - GASTROINTESTINAL HAEMORRHAGE [None]
  - DEATH [None]
